FAERS Safety Report 4299484-1 (Version None)
Quarter: 2004Q1

REPORT INFORMATION
  Report Type: 
  Country: None (occurrence: None)
  Receive Date: 20040219
  Receipt Date: 20040211
  Transmission Date: 20041129
  Serious: Yes (Death, Hospitalization)
  Sender: FDA-Public Use
  Company Number: FR-GLAXOSMITHKLINE-B0322856A

PATIENT
  Age: 81 Year
  Sex: Female

DRUGS (9)
  1. AUGMENTIN [Suspect]
     Dosage: 1G THREE TIMES PER DAY
     Route: 042
     Dates: start: 20031126, end: 20031201
  2. CALCIPARINE [Suspect]
     Dosage: .4ML TWICE PER DAY
     Route: 058
     Dates: start: 20031201, end: 20031209
  3. CIFLOX [Suspect]
     Dosage: 200MG TWICE PER DAY
     Route: 050
     Dates: start: 20031128, end: 20031210
  4. HEPARIN SODIUM [Suspect]
     Dosage: 12000IU PER DAY
     Route: 042
     Dates: start: 20031126, end: 20031130
  5. MOPRAL [Concomitant]
     Route: 048
     Dates: start: 20031208
  6. DIAMICRON [Concomitant]
     Indication: DIABETES MELLITUS
     Dosage: 80MG THREE TIMES PER DAY
     Route: 048
  7. APROVEL [Concomitant]
     Indication: ESSENTIAL HYPERTENSION
     Route: 048
  8. SERMION [Concomitant]
     Route: 048
  9. FONZYLANE [Concomitant]
     Route: 050
     Dates: start: 20031208

REACTIONS (6)
  - CYANOSIS [None]
  - MYOCARDIAL INFARCTION [None]
  - PLATELET FACTOR 4 INCREASED [None]
  - THROMBOCYTOPENIA [None]
  - THROMBOSIS [None]
  - TOE AMPUTATION [None]
